FAERS Safety Report 5826764-8 (Version None)
Quarter: 2008Q3

REPORT INFORMATION
  Report Type: 
  Country: None (occurrence: None)
  Receive Date: 20080728
  Receipt Date: 20080728
  Transmission Date: 20090109
  Serious: Yes (Hospitalization)
  Sender: FDA-Public Use
  Company Number: None

PATIENT
  Age: 21 Year
  Sex: Female
  Weight: 96.6162 kg

DRUGS (2)
  1. ABILIFY [Suspect]
     Dosage: 2 DAILY
  2. TRAZODONE HCL [Suspect]
     Dosage: 2 DAILY

REACTIONS (4)
  - ASTHENIA [None]
  - MALAISE [None]
  - OVERDOSE [None]
  - POSTURE ABNORMAL [None]
